FAERS Safety Report 10682313 (Version 1)
Quarter: 2014Q4

REPORT INFORMATION
  Report Type: Spontaneous
  Country: DE (occurrence: None)
  Receive Date: 20141224
  Receipt Date: 20141224
  Transmission Date: 20150529
  Serious: Yes (Hospitalization)
  Sender: FDA-Public Use
  Company Number: 2014FE03579

PATIENT
  Age: 04 Year
  Sex: Male
  Weight: 17 kg

DRUGS (1)
  1. MINIRIN [Suspect]
     Active Substance: DESMOPRESSIN ACETATE
     Indication: VON WILLEBRAND^S DISEASE
     Dosage: IV DRIP
     Route: 041

REACTIONS (2)
  - Hyponatraemia [None]
  - Seizure [None]

NARRATIVE: CASE EVENT DATE: 20141015
